FAERS Safety Report 11982741 (Version 1)
Quarter: 2016Q1

REPORT INFORMATION
  Report Type: Spontaneous
  Country: US (occurrence: US)
  Receive Date: 20160201
  Receipt Date: 20160201
  Transmission Date: 20160526
  Serious: Yes (Life-Threatening)
  Sender: FDA-Public Use
  Company Number: US-ROXANE LABORATORIES, INC.-2016-RO-00148RO

PATIENT
  Age: 39 Year
  Sex: Female

DRUGS (6)
  1. METOPROLOL. [Concomitant]
     Active Substance: METOPROLOL
     Indication: ACUTE MYOCARDIAL INFARCTION
     Route: 065
  2. DEXAMETHASONE TABLETS USP, 1.5 MG [Suspect]
     Active Substance: DEXAMETHASONE
     Indication: PHARYNGITIS STREPTOCOCCAL
     Dosage: 10 MG
     Route: 065
  3. PRASUGREL [Concomitant]
     Active Substance: PRASUGREL
     Indication: ACUTE MYOCARDIAL INFARCTION
     Route: 065
  4. HEPARIN [Concomitant]
     Active Substance: HEPARIN SODIUM
     Indication: ACUTE MYOCARDIAL INFARCTION
     Route: 065
  5. MORPHINE [Concomitant]
     Active Substance: MORPHINE
     Indication: ACUTE MYOCARDIAL INFARCTION
     Route: 065
  6. ASPIRIN. [Concomitant]
     Active Substance: ASPIRIN
     Indication: ACUTE MYOCARDIAL INFARCTION
     Route: 065

REACTIONS (5)
  - Respiratory failure [Recovered/Resolved]
  - Phaeochromocytoma crisis [Recovered/Resolved]
  - Cardiogenic shock [Recovered/Resolved]
  - Cardiomyopathy [Recovered/Resolved]
  - Pulmonary oedema [Recovered/Resolved]
